FAERS Safety Report 5883707-9 (Version None)
Quarter: 2008Q3

REPORT INFORMATION
  Report Type: 
  Country: None (occurrence: None)
  Receive Date: 20080910
  Receipt Date: 20080827
  Transmission Date: 20090109
  Serious: Yes (Death, Life-Threatening, Hospitalization)
  Sender: FDA-Public Use
  Company Number: 000739

PATIENT
  Age: 58 Year
  Sex: Male

DRUGS (6)
  1. BUSULFEX [Suspect]
     Indication: STEM CELL TRANSPLANT
     Dosage: 33.2 ML, DAILY DOSE INTRAVENOUS; 16.6 ML, DAILY DOSE INTRAVENOUS
     Route: 042
     Dates: start: 20071025, end: 20071025
  2. BUSULFEX [Suspect]
     Indication: STEM CELL TRANSPLANT
     Dosage: 33.2 ML, DAILY DOSE INTRAVENOUS; 16.6 ML, DAILY DOSE INTRAVENOUS
     Route: 042
     Dates: start: 20071026, end: 20071026
  3. FLUDARABINE PHOSPHATE [Concomitant]
  4. MELPHALAN (MELPHALAN) [Concomitant]
  5. VALPROATE SODIUM [Concomitant]
  6. METHOTREXATE [Concomitant]

REACTIONS (16)
  - ALANINE AMINOTRANSFERASE INCREASED [None]
  - ANOREXIA [None]
  - ASPARTATE AMINOTRANSFERASE INCREASED [None]
  - BLOOD BILIRUBIN INCREASED [None]
  - BLOOD CREATININE INCREASED [None]
  - BLOOD POTASSIUM DECREASED [None]
  - BLOOD UREA INCREASED [None]
  - BONE MARROW TRANSPLANT [None]
  - CEREBRAL HAEMORRHAGE [None]
  - DIARRHOEA [None]
  - MALAISE [None]
  - MULTI-ORGAN FAILURE [None]
  - PNEUMONIA [None]
  - SEPSIS [None]
  - SHOCK [None]
  - VOMITING [None]
